FAERS Safety Report 7245650-2 (Version None)
Quarter: 2011Q1

REPORT INFORMATION
  Report Type: 
  Country: None (occurrence: None)
  Receive Date: 20110126
  Receipt Date: 20110113
  Transmission Date: 20110831
  Serious: Yes (Hospitalization, Other)
  Sender: FDA-Public Use
  Company Number: AU-AMGEN-QUU440322

PATIENT
  Age: 51 Year
  Sex: Male
  Weight: 76 kg

DRUGS (20)
  1. TEMAZEPAM [Concomitant]
  2. TICARCILLIN [Concomitant]
     Dosage: UNK UNK, UNK
     Dates: start: 20100914, end: 20100924
  3. SENNOSIDE [Concomitant]
  4. OMEPRAZOLE [Concomitant]
  5. ARANESP [Suspect]
     Indication: RENAL FAILURE CHRONIC
     Dosage: 120 A?G, 2 TIMES/WK
     Route: 058
     Dates: start: 20060619
  6. PREDNISOLONE [Concomitant]
  7. SULFAMETHOXAZOLE AND TRIMETHOPRIM [Concomitant]
     Dosage: UNK UNK, UNK
  8. DOCUSATE [Concomitant]
  9. CLAVULANATE POTASSIUM [Concomitant]
     Dosage: UNK UNK, UNK
     Dates: start: 20100914, end: 20100924
  10. ALBUTEROL [Concomitant]
  11. RISPERIDONE [Concomitant]
  12. SERTRALINE HYDROCHLORIDE [Concomitant]
  13. AMLODIPINE [Concomitant]
  14. ARANESP [Suspect]
     Indication: GLOMERULONEPHRITIS CHRONIC
  15. ASPIRIN [Suspect]
  16. SEVELAMER [Concomitant]
     Dosage: UNK UNK, UNK
  17. REBOXETINE [Concomitant]
  18. WARFARIN [Suspect]
  19. AZITHROMYCIN [Concomitant]
  20. VANCOMYCIN [Concomitant]
     Dosage: UNK UNK, UNK
     Dates: start: 20100914, end: 20100924

REACTIONS (3)
  - HAEMOGLOBIN DECREASED [None]
  - DRUG INEFFECTIVE [None]
  - PULMONARY HAEMORRHAGE [None]
